FAERS Safety Report 5724741-9 (Version None)
Quarter: 2008Q2

REPORT INFORMATION
  Report Type: 
  Country: None (occurrence: None)
  Receive Date: 20080430
  Receipt Date: 20080430
  Transmission Date: 20081010
  Serious: No
  Sender: FDA-Public Use
  Company Number: None

PATIENT

DRUGS (1)
  1. SUN BATH PROTECTIVE TANNING LOTION [Suspect]

REACTIONS (8)
  - ACCIDENTAL EXPOSURE [None]
  - CRYING [None]
  - EYE IRRITATION [None]
  - EYE PAIN [None]
  - INCORRECT ROUTE OF DRUG ADMINISTRATION [None]
  - PHOTOPHOBIA [None]
  - SCREAMING [None]
  - VISION BLURRED [None]
